FAERS Safety Report 15492082 (Version 1)
Quarter: 2018Q4

REPORT INFORMATION
  Report Type: Other
  Country: TR (occurrence: TR)
  Receive Date: 20181012
  Receipt Date: 20181012
  Transmission Date: 20190205
  Serious: Yes (Death)
  Sender: FDA-Public Use
  Company Number: TR-ACTELION-A-CH2018-180050

PATIENT
  Age: 19 Year
  Sex: Female
  Weight: 46 kg

DRUGS (1)
  1. BOSENTAN. [Suspect]
     Active Substance: BOSENTAN
     Indication: PULMONARY ARTERIAL HYPERTENSION
     Dosage: 125 MG, BID
     Route: 048
     Dates: start: 20100319, end: 20150523

REACTIONS (4)
  - Disease progression [Unknown]
  - Influenza [Fatal]
  - Nasopharyngitis [Fatal]
  - Pulmonary arterial hypertension [Unknown]
